FAERS Safety Report 15523727 (Version 1)
Quarter: 2018Q4

REPORT INFORMATION
  Report Type: Spontaneous
  Country: CA (occurrence: CA)
  Receive Date: 20181018
  Receipt Date: 20181018
  Transmission Date: 20190205
  Serious: Yes (Other)
  Sender: FDA-Public Use
  Company Number: CA-UCBSA-2018045361

PATIENT
  Age: 10 Month
  Sex: Female

DRUGS (21)
  1. PREDNISOLONE. [Suspect]
     Active Substance: PREDNISOLONE
     Indication: SEIZURE
     Dosage: UNK
  2. APO-VALPROIC [Suspect]
     Active Substance: VALPROIC ACID
     Indication: SEIZURE
     Dosage: UNK
  3. RUFINAMIDE [Suspect]
     Active Substance: RUFINAMIDE
     Indication: SEIZURE
     Dosage: UNK
  4. CANNABIDIOL [Suspect]
     Active Substance: CANNABIDIOL
     Indication: SEIZURE
     Dosage: UNK
  5. PYRIDOXAL PHOSPHATE [Suspect]
     Active Substance: PYRIDOXAL PHOSPHATE
     Indication: SEIZURE
     Dosage: UNK
  6. APO LEVETIRACETAM [Suspect]
     Active Substance: LEVETIRACETAM
     Indication: SEIZURE
     Dosage: UNK
  7. PHENYTOIN. [Suspect]
     Active Substance: PHENYTOIN
     Indication: SEIZURE
  8. APO-CLOBAZAM [Suspect]
     Active Substance: CLOBAZAM
     Indication: SEIZURE
     Dosage: UNK
  9. LEVETIRACETAM. [Suspect]
     Active Substance: LEVETIRACETAM
     Indication: SEIZURE
     Dosage: UNK
  10. CARBAMAZEPINE. [Suspect]
     Active Substance: CARBAMAZEPINE
     Indication: SEIZURE
     Dosage: UNK
  11. VALPROIC ACID. [Suspect]
     Active Substance: VALPROIC ACID
     Indication: SEIZURE
     Dosage: UNK
  12. APO CARBAMAZEPINE [Suspect]
     Active Substance: CARBAMAZEPINE
     Indication: SEIZURE
     Dosage: 200 MG
  13. APO-TOPIRAMATE [Suspect]
     Active Substance: TOPIRAMATE
     Indication: SEIZURE
     Dosage: UNK
  14. TOPIRAMATE. [Suspect]
     Active Substance: TOPIRAMATE
     Indication: SEIZURE
     Dosage: UNK
  15. PERAMPANEL [Suspect]
     Active Substance: PERAMPANEL
     Indication: SEIZURE
     Dosage: UNK
  16. VIGABATRIN. [Suspect]
     Active Substance: VIGABATRIN
     Indication: SEIZURE
     Dosage: UNK
  17. BANZEL [Suspect]
     Active Substance: RUFINAMIDE
     Indication: SEIZURE
     Dosage: UNK
  18. CLOBAZAM. [Suspect]
     Active Substance: CLOBAZAM
     Indication: SEIZURE
     Dosage: UNK
  19. FYCOMPA [Suspect]
     Active Substance: PERAMPANEL
     Indication: SEIZURE
     Dosage: UNK
  20. PHENOBARBITAL. [Suspect]
     Active Substance: PHENOBARBITAL
     Indication: SEIZURE
     Dosage: UNK
  21. PHENOBARBITAL. [Suspect]
     Active Substance: PHENOBARBITAL
     Indication: SEIZURE
     Dosage: UNK

REACTIONS (1)
  - Drug resistance [Unknown]
